FAERS Safety Report 4415449-0 (Version None)
Quarter: 2004Q2

REPORT INFORMATION
  Report Type: 
  Country: None (occurrence: None)
  Receive Date: 20040630
  Receipt Date: 20031218
  Transmission Date: 20050107
  Serious: Yes (Other)
  Sender: FDA-Public Use
  Company Number: 2003113323

PATIENT
  Age: 61 Year
  Sex: Female
  Weight: 64.4108 kg

DRUGS (9)
  1. ZOLOFT [Suspect]
     Indication: FIBROMYALGIA
     Dosage: 50 MG (DAILY), ORAL
     Route: 048
     Dates: start: 19930101
  2. STERASKIN [Suspect]
     Indication: VULVOVAGINAL DRYNESS
  3. ATENOLOL [Concomitant]
  4. HYDROCHLOROTHIAZIDE [Concomitant]
  5. LEVOTHYROXINE SODIUM [Concomitant]
  6. VALACICLOVIR HYDROCHLORIDE (VALACICLOVIR HYDROCHLORIDE) [Concomitant]
  7. ESTROGENS (ESTROGENS) [Concomitant]
  8. MEDROXYPROGESTERONE ACETATE [Concomitant]
  9. ALPRAZOLAM [Concomitant]

REACTIONS (25)
  - ABNORMAL DREAMS [None]
  - AGGRESSION [None]
  - AGITATION [None]
  - AMNESIA [None]
  - ANXIETY [None]
  - COGNITIVE DETERIORATION [None]
  - CONFUSIONAL STATE [None]
  - CRYING [None]
  - DEMENTIA [None]
  - DEPRESSION [None]
  - DIZZINESS [None]
  - DRUG INEFFECTIVE [None]
  - DRUG WITHDRAWAL SYNDROME [None]
  - DRY MOUTH [None]
  - GAIT DISTURBANCE [None]
  - HOMICIDAL IDEATION [None]
  - IRRITABILITY [None]
  - KERATOCONJUNCTIVITIS SICCA [None]
  - MOOD ALTERED [None]
  - MYALGIA [None]
  - NIGHTMARE [None]
  - PERNICIOUS ANAEMIA [None]
  - SUICIDAL IDEATION [None]
  - THINKING ABNORMAL [None]
  - VULVOVAGINAL DRYNESS [None]
